FAERS Safety Report 8079809-1 (Version None)
Quarter: 2012Q1

REPORT INFORMATION
  Report Type: 
  Country: None (occurrence: None)
  Receive Date: 20120128
  Receipt Date: 20110829
  Transmission Date: 20120608
  Serious: No
  Sender: FDA-Public Use
  Company Number: US-ABBOTT-11P-163-0850556-00

PATIENT
  Age: 35 Year
  Sex: Male

DRUGS (7)
  1. HUMIRA [Suspect]
     Dosage: NOT REPORTED
  2. ZOCOR [Concomitant]
     Indication: BLOOD CHOLESTEROL INCREASED
  3. MULTI-VITAMIN [Concomitant]
     Indication: PRODUCT USED FOR UNKNOWN INDICATION
     Dosage: DAILY
  4. AMARYL [Concomitant]
     Indication: DIABETES MELLITUS
  5. HUMIRA [Suspect]
     Indication: CROHN'S DISEASE
     Dosage: INDUCTION: 160MG / 80MG LOADING DOSES
     Dates: start: 20110810, end: 20110810
  6. METFORMIN HCL [Concomitant]
     Indication: DIABETES MELLITUS
  7. HUMIRA [Suspect]
     Dosage: SECONDARY LOADING DOSE

REACTIONS (1)
  - INJECTION SITE PAIN [None]
